FAERS Safety Report 10974471 (Version 2)
Quarter: 2015Q3

REPORT INFORMATION
  Report Type: Spontaneous
  Country: US (occurrence: US)
  Receive Date: 20150401
  Receipt Date: 20150908
  Transmission Date: 20151125
  Serious: Yes (Hospitalization)
  Sender: FDA-Public Use
  Company Number: US-009507513-1503USA014284

PATIENT
  Sex: Male

DRUGS (4)
  1. FINASTERIDE. [Suspect]
     Active Substance: FINASTERIDE
     Indication: ANDROGENETIC ALOPECIA
  2. PROPECIA [Suspect]
     Active Substance: FINASTERIDE
     Indication: ANDROGENETIC ALOPECIA
     Dosage: 1 MG, UNK
     Route: 048
     Dates: start: 200411, end: 201009
  3. PROPECIA [Suspect]
     Active Substance: FINASTERIDE
     Indication: ALOPECIA
  4. FINASTERIDE. [Suspect]
     Active Substance: FINASTERIDE
     Indication: ALOPECIA
     Dosage: UNK
     Route: 048

REACTIONS (13)
  - Hair transplant [Unknown]
  - Loss of libido [Unknown]
  - Testicular pain [Unknown]
  - Fatigue [Unknown]
  - Erectile dysfunction [Unknown]
  - Myalgia [Unknown]
  - Ejaculation failure [Unknown]
  - Depression [Not Recovered/Not Resolved]
  - Shoulder operation [Unknown]
  - Sexual dysfunction [Not Recovered/Not Resolved]
  - Hypogonadism [Unknown]
  - Vision blurred [Unknown]
  - Cognitive disorder [Not Recovered/Not Resolved]

NARRATIVE: CASE EVENT DATE: 200412
